FAERS Safety Report 20761230 (Version 1)
Quarter: 2022Q2

REPORT INFORMATION
  Report Type: Spontaneous
  Country: ES (occurrence: ES)
  Receive Date: 20220428
  Receipt Date: 20220428
  Transmission Date: 20220720
  Serious: Yes (Other)
  Sender: FDA-Public Use
  Company Number: None

PATIENT
  Age: 81 Year
  Sex: Female

DRUGS (3)
  1. ALLOPURINOL [Suspect]
     Active Substance: ALLOPURINOL
     Indication: Hyperuricaemia
     Dosage: 1 PC DAY, DURATION : 46 DAYS, STRENGTH: 300 MG
     Route: 048
     Dates: start: 20210508, end: 20210622
  2. CEFIXIME [Suspect]
     Active Substance: CEFIXIME
     Indication: Respiratory tract infection
     Dosage: 400 MILLIGRAM DAILY; 200MG/12H,  CEFIXIMA, STRENGTH: 200 MG 14 CAPSULES, DURATION : 8 DAYS
     Route: 048
     Dates: start: 20210610, end: 20210617
  3. SULFAMETHOXAZOLE\TRIMETHOPRIM [Suspect]
     Active Substance: SULFAMETHOXAZOLE\TRIMETHOPRIM
     Indication: Prophylaxis
     Dosage: 400/80MG/12H M-W-F, UNIT DOSE: 6 DF, FREQUENCY TIME : 1 WEEK, DURATION : 37 DAYS
     Route: 048
     Dates: start: 20210517, end: 20210622

REACTIONS (4)
  - Rash maculo-papular [Recovered/Resolved]
  - Enanthema [Recovering/Resolving]
  - Pruritus [Recovered/Resolved]
  - Palatal oedema [Recovered/Resolved]

NARRATIVE: CASE EVENT DATE: 20210616
